FAERS Safety Report 17699128 (Version 1)
Quarter: 2020Q2

REPORT INFORMATION
  Report Type: Spontaneous
  Country: US (occurrence: US)
  Receive Date: 20200422
  Receipt Date: 20200422
  Transmission Date: 20200714
  Serious: Yes (Hospitalization, Other)
  Sender: FDA-Public Use
  Company Number: None

PATIENT
  Age: 25 Year
  Sex: Female
  Weight: 82 kg

DRUGS (1)
  1. OLANZAPINE. [Suspect]
     Active Substance: OLANZAPINE
     Indication: AFFECTIVE DISORDER
     Route: 048
     Dates: start: 20180913

REACTIONS (7)
  - Agitation [None]
  - Tachycardia [None]
  - Intentional overdose [None]
  - Acidosis [None]
  - Hypoxia [None]
  - Somnolence [None]
  - Respiratory failure [None]

NARRATIVE: CASE EVENT DATE: 20200214
